FAERS Safety Report 12612849 (Version 2)
Quarter: 2016Q3

REPORT INFORMATION
  Report Type: Spontaneous
  Country: US (occurrence: US)
  Receive Date: 20160802
  Receipt Date: 20160804
  Transmission Date: 20161109
  Serious: Yes (Death, Hospitalization, Other)
  Sender: FDA-Public Use
  Company Number: US-JNJFOC-20160720145

PATIENT
  Age: 43 Year
  Sex: Male
  Weight: 94.1 kg

DRUGS (3)
  1. KEFLEX [Suspect]
     Active Substance: CEPHALEXIN
     Indication: PRODUCT USED FOR UNKNOWN INDICATION
     Route: 065
     Dates: end: 19980623
  2. TYLENOL EXTRA STRENGTH [Suspect]
     Active Substance: ACETAMINOPHEN
     Indication: PRODUCT USED FOR UNKNOWN INDICATION
     Dosage: USED A LOT OF PARACETAMOL OVER LAST 3 YEARS
     Route: 065
     Dates: start: 20020515
  3. TYLENOL EXTRA STRENGTH [Suspect]
     Active Substance: ACETAMINOPHEN
     Indication: PRODUCT USED FOR UNKNOWN INDICATION
     Dosage: CHRONIC USE (10 DAYS). 6 TO 8, 500 MG/DAY
     Route: 065
     Dates: start: 199806

REACTIONS (6)
  - Brain oedema [Fatal]
  - Overdose [Fatal]
  - Acute hepatic failure [Fatal]
  - Sepsis [Fatal]
  - Arthralgia [Unknown]
  - Chest X-ray abnormal [Unknown]

NARRATIVE: CASE EVENT DATE: 1998
